FAERS Safety Report 14736048 (Version 4)
Quarter: 2019Q1

REPORT INFORMATION
  Report Type: Report from Study
  Country: BE (occurrence: BE)
  Receive Date: 20180409
  Receipt Date: 20190326
  Transmission Date: 20190417
  Serious: Yes (Death, Life-Threatening, Hospitalization, Disabling, Other)
  Sender: FDA-Public Use
  Company Number: BE-JNJFOC-20180127511

PATIENT
  Age: 78 Year
  Sex: Female
  Weight: 58 kg

DRUGS (2)
  1. IBRUTINIB [Suspect]
     Active Substance: IBRUTINIB
     Indication: CHRONIC LYMPHOCYTIC LEUKAEMIA
     Route: 048
     Dates: start: 20151222, end: 20160305
  2. IBRUTINIB [Suspect]
     Active Substance: IBRUTINIB
     Indication: CHRONIC LYMPHOCYTIC LEUKAEMIA
     Route: 048
     Dates: start: 20160319, end: 20180129

REACTIONS (7)
  - Pneumonia [Recovered/Resolved with Sequelae]
  - Erysipelas [Recovered/Resolved]
  - Richter^s syndrome [Fatal]
  - Escherichia bacteraemia [Recovered/Resolved with Sequelae]
  - Urosepsis [Recovered/Resolved]
  - Haematoma infection [Recovered/Resolved with Sequelae]
  - Bacteraemia [Recovered/Resolved]

NARRATIVE: CASE EVENT DATE: 20160219
